FAERS Safety Report 11908322 (Version 2)
Quarter: 2016Q3

REPORT INFORMATION
  Report Type: Spontaneous
  Country: US (occurrence: US)
  Receive Date: 20160111
  Receipt Date: 20160712
  Transmission Date: 20161109
  Serious: Yes (Other)
  Sender: FDA-Public Use
  Company Number: US-APOTEX-2016AP005202

PATIENT
  Sex: Female

DRUGS (2)
  1. PAXIL [Suspect]
     Active Substance: PAROXETINE HYDROCHLORIDE
     Indication: ANXIETY
  2. PAXIL [Suspect]
     Active Substance: PAROXETINE HYDROCHLORIDE
     Indication: MENOPAUSAL DEPRESSION
     Dosage: UNK
     Route: 065
     Dates: start: 2006

REACTIONS (22)
  - Depression [Unknown]
  - Balance disorder [Unknown]
  - Mood altered [Unknown]
  - Dizziness [Unknown]
  - Performance status decreased [Unknown]
  - Confusional state [Unknown]
  - Anxiety [Unknown]
  - Fatigue [Unknown]
  - Agitation [Unknown]
  - Abnormal dreams [Unknown]
  - Frustration tolerance decreased [Unknown]
  - Disturbance in attention [Unknown]
  - Withdrawal syndrome [Unknown]
  - Drug dependence [Unknown]
  - Irritability [Unknown]
  - Restless legs syndrome [Unknown]
  - Asthenia [Unknown]
  - Drug ineffective [Unknown]
  - Impaired work ability [Unknown]
  - Nightmare [Unknown]
  - Insomnia [Unknown]
  - Headache [Unknown]
